FAERS Safety Report 14541707 (Version 3)
Quarter: 2018Q2

REPORT INFORMATION
  Report Type: Spontaneous
  Country: IT (occurrence: IT)
  Receive Date: 20180216
  Receipt Date: 20180626
  Transmission Date: 20180711
  Serious: Yes (Other)
  Sender: FDA-Public Use
  Company Number: IT-JNJFOC-20180214066

PATIENT
  Age: 54 Year
  Sex: Female

DRUGS (4)
  1. HALOPERIDOL. [Suspect]
     Active Substance: HALOPERIDOL
     Indication: SOMATIC SYMPTOM DISORDER
     Route: 048
     Dates: start: 2018
  2. PRAZENE [Concomitant]
     Active Substance: PRAZEPAM
     Indication: SOMATIC SYMPTOM DISORDER
     Route: 048
  3. HALOPERIDOL. [Suspect]
     Active Substance: HALOPERIDOL
     Indication: SOMATIC SYMPTOM DISORDER
     Route: 048
     Dates: start: 20171221, end: 20180110
  4. DULOXETINE HYDROCHLORIDE. [Concomitant]
     Active Substance: DULOXETINE HYDROCHLORIDE
     Indication: SOMATIC SYMPTOM DISORDER
     Route: 048

REACTIONS (6)
  - Gastrointestinal disorder [Recovering/Resolving]
  - Dyspnoea [Recovering/Resolving]
  - Vomiting [Recovering/Resolving]
  - Nausea [Recovering/Resolving]
  - Product use in unapproved indication [Unknown]
  - Off label use [Unknown]

NARRATIVE: CASE EVENT DATE: 20180110
